FAERS Safety Report 17582683 (Version 1)
Quarter: 2020Q1

REPORT INFORMATION
  Report Type: Spontaneous
  Country: TR (occurrence: TR)
  Receive Date: 20200325
  Receipt Date: 20200325
  Transmission Date: 20200409
  Serious: Yes (Other)
  Sender: FDA-Public Use
  Company Number: TR-GILEAD-2020-0456398

PATIENT
  Age: 56 Year
  Sex: Male

DRUGS (4)
  1. ATRIPLA [Suspect]
     Active Substance: EFAVIRENZ\EMTRICITABINE\TENOFOVIR DISOPROXIL FUMARATE
     Indication: HIV INFECTION
     Route: 065
  2. ZINC ACETATE [Concomitant]
     Active Substance: ZINC ACETATE
  3. TRIENTINE [Concomitant]
     Active Substance: TRIENTINE
  4. PENICILLAMINE [Concomitant]
     Active Substance: PENICILLAMINE
     Dosage: 250 MG, TID

REACTIONS (1)
  - Drug-induced liver injury [Unknown]

NARRATIVE: CASE EVENT DATE: 2006
